FAERS Safety Report 4329749-6 (Version None)
Quarter: 2004Q2

REPORT INFORMATION
  Report Type: 
  Country: None (occurrence: None)
  Receive Date: 20040401
  Receipt Date: 20040203
  Transmission Date: 20050107
  Serious: Yes (Death, Hospitalization)
  Sender: FDA-Public Use
  Company Number: FR-GLAXOSMITHKLINE-B0321882A

PATIENT
  Age: 22 Year
  Sex: Male
  Weight: 52 kg

DRUGS (20)
  1. ZANTAC [Suspect]
     Route: 048
     Dates: start: 20031230, end: 20040102
  2. ZYLORIC [Suspect]
     Dosage: 900MG PER DAY
     Route: 048
     Dates: start: 20031221, end: 20031231
  3. ZOPHREN [Suspect]
     Dosage: 8MG TWICE PER DAY
     Route: 042
     Dates: start: 20031220, end: 20031231
  4. ZOVIRAX [Suspect]
     Route: 065
     Dates: start: 20031230
  5. SOLU-MEDROL [Suspect]
     Dosage: 40MG PER DAY
     Route: 042
     Dates: start: 20031220, end: 20040112
  6. VISCERALGINE [Suspect]
     Dosage: 1UNIT PER DAY
     Route: 048
     Dates: start: 20031221, end: 20031228
  7. CIPROFLOXACIN HCL [Suspect]
     Dosage: 200MG TWICE PER DAY
     Route: 042
     Dates: start: 20031220, end: 20040102
  8. ROCEPHIN [Suspect]
     Route: 065
     Dates: start: 20031220, end: 20031231
  9. PRIMPERAN INJ [Suspect]
     Route: 065
     Dates: start: 20031220
  10. DUPHALAC [Suspect]
     Route: 065
     Dates: start: 20031228
  11. ACUPAN [Suspect]
     Route: 065
     Dates: start: 20031228, end: 20031231
  12. DEBRIDAT [Suspect]
     Route: 065
     Dates: start: 20031228
  13. MOPRAL [Concomitant]
     Route: 065
     Dates: start: 20031223, end: 20031225
  14. ONCOVIN [Concomitant]
     Route: 042
     Dates: start: 20031227
  15. ENDOXAN [Concomitant]
     Route: 042
     Dates: start: 20031227
  16. CERUBIDINE [Concomitant]
     Route: 042
     Dates: start: 20031227, end: 20031229
  17. METHOTREXATE [Concomitant]
     Route: 039
     Dates: start: 20031229
  18. ARACYTINE [Concomitant]
     Route: 039
     Dates: start: 20031229
  19. VANCOCIN HCL [Concomitant]
     Route: 065
     Dates: start: 20031231
  20. OFLOCET [Concomitant]
     Route: 065
     Dates: start: 20031231

REACTIONS (5)
  - ALANINE AMINOTRANSFERASE INCREASED [None]
  - ASPARTATE AMINOTRANSFERASE INCREASED [None]
  - BLOOD BILIRUBIN INCREASED [None]
  - JAUNDICE CHOLESTATIC [None]
  - SEPTIC SHOCK [None]
